FAERS Safety Report 5360137-X (Version None)
Quarter: 2007Q2

REPORT INFORMATION
  Report Type: 
  Country: None (occurrence: None)
  Receive Date: 20070618
  Receipt Date: 20070608
  Transmission Date: 20071010
  Serious: Yes (Disabling, Other)
  Sender: FDA-Public Use
  Company Number: PHBS2007CO08960

PATIENT
  Age: 72 Year
  Sex: Male

DRUGS (4)
  1. ZOMETA [Suspect]
     Indication: PROSTATE CANCER
     Dosage: UNK, UNK
     Dates: start: 20060201, end: 20061201
  2. PREDNISOLONE [Concomitant]
  3. DOCETAXEL [Concomitant]
  4. CHEMOTHERAPEUTICS NOS [Concomitant]

REACTIONS (4)
  - OSTEONECROSIS [None]
  - PAIN IN JAW [None]
  - TOOTH EXTRACTION [None]
  - WOUND DEBRIDEMENT [None]
